FAERS Safety Report 10055781 (Version 1)
Quarter: 2014Q2

REPORT INFORMATION
  Report Type: Spontaneous
  Country: FR (occurrence: FR)
  Receive Date: 20140403
  Receipt Date: 20140403
  Transmission Date: 20141212
  Serious: Yes (Other)
  Sender: FDA-Public Use
  Company Number: FR-MYLANLABS-2014S1006426

PATIENT
  Age: 81 Year
  Sex: Male

DRUGS (3)
  1. VANCOMYCIN [Suspect]
     Indication: PRODUCT USED FOR UNKNOWN INDICATION
     Route: 042
     Dates: start: 20140206, end: 20140215
  2. VANCOMYCIN [Suspect]
     Indication: PRODUCT USED FOR UNKNOWN INDICATION
     Route: 042
     Dates: start: 20140228, end: 20140306
  3. PIPERACILLIN / TAZOBACTAM [Suspect]
     Indication: PRODUCT USED FOR UNKNOWN INDICATION
     Route: 042
     Dates: start: 20140228, end: 20140306

REACTIONS (4)
  - Rash maculo-papular [Recovering/Resolving]
  - Purpura [Recovered/Resolved with Sequelae]
  - Pruritus [Recovering/Resolving]
  - Eosinophilia [Recovering/Resolving]
